FAERS Safety Report 14577773 (Version 1)
Quarter: 2018Q1

REPORT INFORMATION
  Report Type: Spontaneous
  Country: US (occurrence: US)
  Receive Date: 20180226
  Receipt Date: 20180226
  Transmission Date: 20180509
  Serious: Yes (Hospitalization)
  Sender: FDA-Public Use
  Company Number: None

PATIENT
  Age: 72 Year
  Sex: Female
  Weight: 81 kg

DRUGS (20)
  1. ACETAMINOPHEN. [Concomitant]
     Active Substance: ACETAMINOPHEN
  2. SYMBICORT [Concomitant]
     Active Substance: BUDESONIDE\FORMOTEROL FUMARATE DIHYDRATE
  3. PHENYTOIN. [Concomitant]
     Active Substance: PHENYTOIN
  4. ALBUTEROL INHALER [Concomitant]
     Active Substance: ALBUTEROL
  5. VALACYCLOVIR [Concomitant]
     Active Substance: VALACYCLOVIR HYDROCHLORIDE
  6. L-LYSINE [Concomitant]
     Active Substance: LYSINE
  7. SIMVASTATIN. [Concomitant]
     Active Substance: SIMVASTATIN
  8. OSPEMIFENE [Suspect]
     Active Substance: OSPEMIFENE
     Indication: DYSPAREUNIA
     Route: 048
  9. ALENDRONATE [Concomitant]
     Active Substance: ALENDRONATE SODIUM
  10. GABAPENTIN. [Concomitant]
     Active Substance: GABAPENTIN
  11. GUAIFENESIN W/CODEINE [Concomitant]
  12. DULOXETINE. [Concomitant]
     Active Substance: DULOXETINE
  13. LANSOPRAZOLE. [Concomitant]
     Active Substance: LANSOPRAZOLE
  14. LURASIDONE [Concomitant]
     Active Substance: LURASIDONE
  15. MIRALAX [Concomitant]
     Active Substance: POLYETHYLENE GLYCOL 3350
  16. CALCIUM CARBONATE W/D [Concomitant]
  17. LEVOFLOXACIN. [Concomitant]
     Active Substance: LEVOFLOXACIN
  18. SUCRALFATE. [Concomitant]
     Active Substance: SUCRALFATE
  19. DICYCLOMINE [Concomitant]
     Active Substance: DICYCLOMINE HYDROCHLORIDE
  20. ONDANSETRON [Concomitant]
     Active Substance: ONDANSETRON

REACTIONS (6)
  - Dysstasia [None]
  - Pain in extremity [None]
  - Deep vein thrombosis [None]
  - Peripheral swelling [None]
  - Gait disturbance [None]
  - Dyspnoea exertional [None]

NARRATIVE: CASE EVENT DATE: 20170306
